FAERS Safety Report 9904787 (Version 4)
Quarter: 2014Q3

REPORT INFORMATION
  Report Type: Report from Study
  Country: FR (occurrence: FR)
  Receive Date: 20140218
  Receipt Date: 20140910
  Transmission Date: 20150326
  Serious: Yes (Other)
  Sender: FDA-Public Use
  Company Number: FR-SA-2014SA019285

PATIENT
  Age: 80 Year
  Sex: Male
  Weight: 79 kg

DRUGS (2)
  1. ALEMTUZUMAB [Suspect]
     Active Substance: ALEMTUZUMAB
     Indication: B-CELL PROLYMPHOCYTIC LEUKAEMIA
     Route: 065
     Dates: start: 20140217, end: 20140404
  2. ALEMTUZUMAB [Suspect]
     Active Substance: ALEMTUZUMAB
     Indication: B-CELL PROLYMPHOCYTIC LEUKAEMIA
     Route: 058
     Dates: start: 20130415, end: 20130712

REACTIONS (3)
  - Neutropenia [Unknown]
  - Drug ineffective [Unknown]
  - Disease recurrence [Unknown]

NARRATIVE: CASE EVENT DATE: 201401
